FAERS Safety Report 8869016 (Version 1)
Quarter: 2012Q4

REPORT INFORMATION
  Report Type: 
  Country: BE (occurrence: BE)
  Receive Date: 20121027
  Receipt Date: 20121027
  Transmission Date: 20130627
  Serious: Yes (Hospitalization)
  Sender: FDA-Public Use
  Company Number: BE-009507513-1210BEL011295

PATIENT
  Sex: Male

DRUGS (2)
  1. SYCREST [Suspect]
     Indication: BIPOLAR DISORDER
     Dosage: UNK
     Route: 060
  2. OMEPRAZOLE [Suspect]
     Route: 048

REACTIONS (1)
  - Drug interaction [Unknown]
